FAERS Safety Report 5514921-X (Version None)
Quarter: 2007Q4

REPORT INFORMATION
  Report Type: 
  Country: None (occurrence: None)
  Receive Date: 20071113
  Receipt Date: 20061004
  Transmission Date: 20080405
  Serious: No
  Sender: FDA-Public Use
  Company Number: A0622483A

PATIENT
  Age: 66 Year
  Sex: Male

DRUGS (9)
  1. COREG [Suspect]
     Dosage: 12.5MG TWICE PER DAY
     Route: 048
     Dates: start: 20040101
  2. ISOSORBIDE DINITRATE [Concomitant]
  3. LASIX [Concomitant]
  4. COUMADIN [Concomitant]
  5. DIOVAN [Concomitant]
  6. BAYER [Concomitant]
  7. LORAZEPAM [Concomitant]
  8. DIGOXIN [Concomitant]
  9. ALDACTONE [Concomitant]

REACTIONS (5)
  - ASTHENIA [None]
  - BLOOD PRESSURE DECREASED [None]
  - CHILLS [None]
  - PYREXIA [None]
  - VIRAL INFECTION [None]
